FAERS Safety Report 9516068 (Version 1)
Quarter: 2013Q3

REPORT INFORMATION
  Report Type: Spontaneous
  Country: SE (occurrence: SE)
  Receive Date: 20130911
  Receipt Date: 20130911
  Transmission Date: 20140515
  Serious: Yes (Hospitalization)
  Sender: FDA-Public Use
  Company Number: SE-PFIZER INC-2013260631

PATIENT
  Age: 23 Year
  Sex: Female

DRUGS (3)
  1. LYRICA [Suspect]
     Dosage: 1500 MG, UNK
  2. ZYPREXA [Suspect]
     Dosage: 150 MG, UNK
  3. IMOVANE [Concomitant]
     Dosage: 37.5 MG, UNK

REACTIONS (7)
  - Intentional overdose [Unknown]
  - Toxicity to various agents [Unknown]
  - Fatigue [Unknown]
  - Tachycardia [Unknown]
  - Muscle contractions involuntary [Unknown]
  - Agitation [Unknown]
  - Anxiety [Unknown]
